FAERS Safety Report 23333492 (Version 2)
Quarter: 2024Q1

REPORT INFORMATION
  Report Type: Spontaneous
  Country: FR (occurrence: FR)
  Receive Date: 20231222
  Receipt Date: 20240104
  Transmission Date: 20240410
  Serious: Yes (Hospitalization, Other)
  Sender: FDA-Public Use
  Company Number: FR-VER-202300033

PATIENT
  Age: 33 Year
  Sex: Male

DRUGS (3)
  1. TRIPTORELIN PAMOATE [Suspect]
     Active Substance: TRIPTORELIN PAMOATE
     Indication: Paraphilia
     Route: 030
     Dates: start: 2023
  2. TRIPTORELIN PAMOATE [Suspect]
     Active Substance: TRIPTORELIN PAMOATE
     Indication: Off label use
     Route: 030
     Dates: start: 2023
  3. ADROCURE [Concomitant]
     Indication: Paraphilia
     Route: 065

REACTIONS (1)
  - Therapeutic response shortened [Unknown]
